FAERS Safety Report 5714234-7 (Version None)
Quarter: 2008Q2

REPORT INFORMATION
  Report Type: 
  Country: None (occurrence: None)
  Receive Date: 20080423
  Receipt Date: 20070810
  Transmission Date: 20081010
  Serious: No
  Sender: FDA-Public Use
  Company Number: US-KINGPHARMUSA00001-K200701025

PATIENT

DRUGS (2)
  1. SKELAXIN [Suspect]
     Route: 048
  2. ADVIL LIQUI-GELS [Suspect]
     Dosage: UNK, QD FOR ^YEARS^

REACTIONS (3)
  - ANGIOEDEMA [None]
  - HYPERSENSITIVITY [None]
  - LIP SWELLING [None]
